FAERS Safety Report 25494431 (Version 1)
Quarter: 2025Q2

REPORT INFORMATION
  Report Type: Spontaneous
  Country: GB (occurrence: GB)
  Receive Date: 20250630
  Receipt Date: 20250630
  Transmission Date: 20250717
  Serious: Yes (Other)
  Sender: TORRENT PHARMA INC.
  Company Number: None

PATIENT
  Age: 9 Year
  Sex: Female

DRUGS (3)
  1. MONTELUKAST [Suspect]
     Active Substance: MONTELUKAST
     Indication: Asthma
     Dosage: 5MG ONCE PER DAY
     Route: 065
     Dates: start: 202310, end: 202404
  2. ALBUTEROL [Concomitant]
     Active Substance: ALBUTEROL
     Indication: Asthma
     Route: 065
  3. Seretide 50 evohaler [Concomitant]
     Indication: Asthma
     Route: 065

REACTIONS (4)
  - Anxiety [Recovering/Resolving]
  - Emotional disorder [Recovering/Resolving]
  - Mood swings [Recovering/Resolving]
  - Abnormal behaviour [Unknown]

NARRATIVE: CASE EVENT DATE: 20231101
